FAERS Safety Report 23196930 (Version 2)
Quarter: 2024Q4

REPORT INFORMATION
  Report Type: Spontaneous
  Country: FR (occurrence: FR)
  Receive Date: 20231117
  Receipt Date: 20241212
  Transmission Date: 20250114
  Serious: Yes (Other)
  Sender: ALEXION PHARMACEUTICALS
  Company Number: 2023A259624

PATIENT
  Age: 37 Year

DRUGS (2)
  1. SAPHNELO [Suspect]
     Active Substance: ANIFROLUMAB-FNIA
     Indication: Systemic lupus erythematosus
     Dosage: 300 MILLIGRAM, UNK, FREQUENCY: Q4WK
  2. SAPHNELO [Suspect]
     Active Substance: ANIFROLUMAB-FNIA
     Indication: Chronic cutaneous lupus erythematosus

REACTIONS (4)
  - Dermatitis bullous [Recovered/Resolved]
  - Arthralgia [Unknown]
  - Systemic lupus erythematosus [Unknown]
  - Cutaneous lupus erythematosus [Recovered/Resolved]
